FAERS Safety Report 6820514-4 (Version None)
Quarter: 2010Q3

REPORT INFORMATION
  Report Type: 
  Country: None (occurrence: None)
  Receive Date: 20100707
  Receipt Date: 20100622
  Transmission Date: 20110219
  Serious: Yes (Other)
  Sender: FDA-Public Use
  Company Number: PHHY2010JP39779

PATIENT
  Age: 72 Year
  Sex: Female

DRUGS (7)
  1. NEORAL [Suspect]
     Indication: APLASTIC ANAEMIA
     Dosage: 3 MG/ KG
     Route: 048
     Dates: start: 20061101
  2. NEORAL [Suspect]
     Dosage: 300 MG
     Route: 048
     Dates: start: 20070404, end: 20090112
  3. NEORAL [Suspect]
     Dosage: 250 MG
     Route: 048
     Dates: start: 20090924
  4. PREDONINE [Suspect]
     Indication: APLASTIC ANAEMIA
     Dosage: 40 MG
     Dates: start: 20081201
  5. PREDONINE [Suspect]
     Dosage: 40 MG
  6. SALAZOSULFAPYRIDINE [Concomitant]
     Indication: COLITIS ULCERATIVE
  7. PENTASA [Concomitant]
     Indication: COLITIS ULCERATIVE
     Dosage: 2000 MG
     Dates: start: 20061101

REACTIONS (2)
  - COLITIS ULCERATIVE [None]
  - CYTOMEGALOVIRUS ENTEROCOLITIS [None]
